FAERS Safety Report 8852528 (Version 1)
Quarter: 2012Q4

REPORT INFORMATION
  Report Type: Report from Study
  Country: DE (occurrence: DE)
  Receive Date: 20121022
  Receipt Date: 20121022
  Transmission Date: 20130627
  Serious: Yes (Death)
  Sender: FDA-Public Use
  Company Number: DE-ROCHE-1144449

PATIENT
  Sex: Male
  Weight: 67 kg

DRUGS (1)
  1. CAPECITABINE [Suspect]
     Indication: GASTRIC CANCER
     Route: 050

REACTIONS (5)
  - Neoplasm malignant [Fatal]
  - Hepatomegaly [Fatal]
  - General physical health deterioration [Fatal]
  - Pain [Fatal]
  - Metastases to liver [Fatal]
